FAERS Safety Report 9174733 (Version 1)
Quarter: 2013Q1

REPORT INFORMATION
  Report Type: Spontaneous
  Country: US (occurrence: US)
  Receive Date: 20130320
  Receipt Date: 20130320
  Transmission Date: 20140127
  Serious: Yes (Other)
  Sender: FDA-Public Use
  Company Number: US-ELI_LILLY_AND_COMPANY-US201303002644

PATIENT
  Age: 42 Year
  Sex: Female

DRUGS (1)
  1. CYMBALTA [Suspect]
     Dosage: 30 MG, QD

REACTIONS (3)
  - Hypersensitivity [Recovered/Resolved]
  - Abdominal pain [Recovered/Resolved]
  - Burning sensation [Recovered/Resolved]
